FAERS Safety Report 6222238-3 (Version None)
Quarter: 2009Q2

REPORT INFORMATION
  Report Type: 
  Country: None (occurrence: None)
  Receive Date: 20090611
  Receipt Date: 20090602
  Transmission Date: 20091009
  Serious: Yes (Other)
  Sender: FDA-Public Use
  Company Number: PHEH2009US05204

PATIENT
  Sex: Male
  Weight: 100.68 kg

DRUGS (12)
  1. ZOMETA [Suspect]
     Indication: METASTASES TO BONE
     Dosage: 4 MG, QMO
     Route: 042
     Dates: start: 20070222, end: 20070531
  2. TAXOTERE [Concomitant]
     Indication: PROSTATE CANCER
     Dosage: 77 MG, QW
  3. ELIGARD [Concomitant]
     Indication: PROSTATE CANCER
     Dosage: 7.5 MG
     Route: 030
     Dates: start: 20061108
  4. CRESTOR [Concomitant]
     Indication: HYPERLIPIDAEMIA
     Dosage: 10 MG
     Route: 048
  5. PRILOSEC [Concomitant]
     Indication: GASTROOESOPHAGEAL REFLUX DISEASE
     Dosage: 20 MG
     Route: 048
  6. EFFEXOR [Concomitant]
     Indication: DEPRESSION
     Dosage: 37.5 MG, QD
     Route: 048
  7. CALCIUM W/VITAMINS NOS [Concomitant]
  8. PREDNISONE [Concomitant]
     Indication: PROSTATE CANCER
     Dosage: 10 MG, QD
     Route: 048
     Dates: start: 20070130
  9. LUPRON [Concomitant]
     Dosage: 1 DOSE EVERY 3 MONTHS
  10. ASPIRIN [Concomitant]
     Dosage: 81 MG, QD
  11. VITAMIN B COMPLEX CAP [Concomitant]
  12. VITAMIN D [Concomitant]

REACTIONS (5)
  - BONE DISORDER [None]
  - DENTAL OPERATION [None]
  - OSTEONECROSIS [None]
  - PAIN [None]
  - TOOTH DISORDER [None]
